FAERS Safety Report 7786238-4 (Version None)
Quarter: 2011Q3

REPORT INFORMATION
  Report Type: 
  Country: None (occurrence: None)
  Receive Date: 20110929
  Receipt Date: 20110920
  Transmission Date: 20111222
  Serious: Yes (Hospitalization)
  Sender: FDA-Public Use
  Company Number: FR-ASTRAZENECA-2011SE56423

PATIENT
  Age: 81 Year
  Sex: Female

DRUGS (21)
  1. FOSINOPRIL SODIUM AND HYDROCHLOROTHIAZIDE [Suspect]
     Dosage: 20+12.5 MG, 1 DF DAILY
     Route: 048
     Dates: end: 20110822
  2. PIASCLEDINE [Suspect]
     Route: 048
     Dates: end: 20110822
  3. DOMPERIDONE [Suspect]
     Dosage: 10 MG, 1 TO 2 TABLETS THREE TIMES DAILY
     Route: 048
     Dates: start: 20110706, end: 20110822
  4. METOPROLOL TARTRATE [Concomitant]
     Route: 048
  5. PREVISCAN [Suspect]
     Route: 048
     Dates: end: 20110822
  6. PREVISCAN [Suspect]
     Route: 048
     Dates: start: 20110824
  7. FUROSEMIDE [Suspect]
     Route: 048
     Dates: start: 20110828
  8. ALUMINUM HYDROXIDE AND MAGNESIUM TRISILICATE [Suspect]
     Route: 048
     Dates: start: 20110816, end: 20110822
  9. FLECTOR [Suspect]
     Route: 061
     Dates: start: 20110608, end: 20110822
  10. DIGOXIN [Suspect]
     Route: 048
     Dates: start: 20110830
  11. GLUCOPHAGE [Suspect]
     Route: 048
     Dates: end: 20110822
  12. FUROSEMIDE [Suspect]
     Route: 048
     Dates: end: 20110822
  13. ACETAMINOPHEN [Suspect]
     Route: 048
     Dates: start: 20110316, end: 20110822
  14. LEVOTHYROXINE [Concomitant]
     Route: 048
  15. DIGOXIN [Suspect]
     Dosage: 0.125 MG SIX DAYS PER WEEK
     Route: 048
     Dates: end: 20110822
  16. LOPERAMIDE HCL [Suspect]
     Route: 048
     Dates: start: 20110706, end: 20110822
  17. ZOLPIDEM [Suspect]
     Route: 048
     Dates: start: 20110706, end: 20110822
  18. PHLOROGLUCINOL [Suspect]
     Route: 048
     Dates: start: 20110816, end: 20110822
  19. CRESTOR [Suspect]
     Route: 048
     Dates: end: 20110822
  20. ONGLYZA [Suspect]
     Route: 048
     Dates: start: 20110706, end: 20110822
  21. LANSOPRAZOLE [Suspect]
     Route: 048
     Dates: start: 20110706, end: 20110822

REACTIONS (4)
  - METABOLIC ACIDOSIS [None]
  - RENAL FAILURE [None]
  - HYPERKALAEMIA [None]
  - DEHYDRATION [None]
